FAERS Safety Report 9030323 (Version 1)
Quarter: 2013Q1

REPORT INFORMATION
  Report Type: Spontaneous
  Country: BR (occurrence: BR)
  Receive Date: 20130122
  Receipt Date: 20130122
  Transmission Date: 20140127
  Serious: Yes (Other)
  Sender: FDA-Public Use
  Company Number: BR-PFIZER INC-2013009285

PATIENT
  Age: 64 Year
  Sex: Female
  Weight: 69 kg

DRUGS (8)
  1. CHAMPIX [Suspect]
     Indication: SMOKING CESSATION THERAPY
     Dosage: UNK
     Route: 048
     Dates: start: 2008
  2. CHAMPIX [Suspect]
     Dosage: UNK
     Route: 048
     Dates: start: 20121212, end: 20130114
  3. ATORVASTATIN [Concomitant]
     Dosage: UNK
  4. GLIFAGE [Concomitant]
     Indication: BLOOD GLUCOSE ABNORMAL
     Dosage: UNK
  5. ZIPROL [Concomitant]
     Indication: ABDOMINAL DISCOMFORT
     Dosage: 1 TABLET, 2X/DAY
  6. ZIPROL [Concomitant]
     Indication: GASTRITIS
  7. ZOLOFT [Concomitant]
     Indication: DEPRESSION
     Dosage: 1 TABLET DAILY
     Dates: start: 201207
  8. ROSTATIN [Concomitant]
     Indication: BLOOD CHOLESTEROL
     Dosage: 1 TABLET DAILY

REACTIONS (5)
  - Suicidal ideation [Unknown]
  - Depression [Recovered/Resolved]
  - Decreased interest [Unknown]
  - Anxiety [Unknown]
  - Abdominal discomfort [Recovering/Resolving]
